FAERS Safety Report 25956320 (Version 1)
Quarter: 2025Q4

REPORT INFORMATION
  Report Type: Spontaneous
  Country: US (occurrence: None)
  Receive Date: 20251023
  Receipt Date: 20251023
  Transmission Date: 20260118
  Serious: Yes (Hospitalization)
  Sender: FDA-CTU
  Company Number: None

PATIENT
  Sex: Male

DRUGS (11)
  1. NUCALA [Suspect]
     Active Substance: MEPOLIZUMAB
     Indication: Asthma
     Dosage: FREQ: INJECT 1 PEN UNDER THE SKIN (SUBCUTANEOUS INJECTION) EVERY FOUR WEEKS?
     Route: 058
  2. ALBUTEROL SULFATE [Concomitant]
     Active Substance: ALBUTEROL SULFATE
  3. AMIODARONE [Concomitant]
     Active Substance: AMIODARONE
  4. ELIOUIS  TAB 5MG [Concomitant]
  5. FAMOTIDINE TAB 40MG [Concomitant]
  6. HUMALOG  INJ 100/ML [Concomitant]
  7. LANTUS  INJ 100/ML [Concomitant]
  8. LOSARTAN/HCTTAB 100-12.5 [Concomitant]
  9. MOMETASONE SPR 50MCG [Concomitant]
  10. ROFLUMILAST [Concomitant]
     Active Substance: ROFLUMILAST
  11. ROSUVASTATIN [Concomitant]
     Active Substance: ROSUVASTATIN

REACTIONS (2)
  - Asthma [None]
  - Quality of life decreased [None]
